FAERS Safety Report 15289752 (Version 2)
Quarter: 2018Q3

REPORT INFORMATION
  Report Type: Report from Study
  Country: US (occurrence: US)
  Receive Date: 20180817
  Receipt Date: 20180820
  Transmission Date: 20181010
  Serious: Yes (Hospitalization, Other)
  Sender: FDA-Public Use
  Company Number: US-UCBSA-2018035460

PATIENT
  Age: 87 Year
  Sex: Female
  Weight: 68 kg

DRUGS (2)
  1. LACOSAMIDE. [Suspect]
     Active Substance: LACOSAMIDE
     Indication: PARTIAL SEIZURES
     Dosage: 100 MG IN MORNING AND 200 MG IN NIGHT, 2X/DAY (BID)
     Route: 048
     Dates: start: 20170126, end: 20180705
  2. LACOSAMIDE. [Suspect]
     Active Substance: LACOSAMIDE
     Dosage: 200 MG, 2X/DAY (BID)
     Route: 048
     Dates: start: 20180706

REACTIONS (5)
  - Seizure [Not Recovered/Not Resolved]
  - Transient ischaemic attack [Recovering/Resolving]
  - Cerebrovascular accident [Recovering/Resolving]
  - Feeling abnormal [Recovering/Resolving]
  - Off label use [Unknown]

NARRATIVE: CASE EVENT DATE: 20170126
